FAERS Safety Report 4380831-7 (Version None)
Quarter: 2004Q2

REPORT INFORMATION
  Report Type: 
  Country: None (occurrence: None)
  Receive Date: 20040616
  Receipt Date: 20040604
  Transmission Date: 20050107
  Serious: Yes (Death)
  Sender: FDA-Public Use
  Company Number: 200410367BNE

PATIENT
  Age: 85 Year
  Sex: Female

DRUGS (5)
  1. ASPIRIN [Suspect]
     Indication: AGE INDETERMINATE MYOCARDIAL INFARCTION
     Dosage: 75 MG, TOTAL DAILY, ORAL
     Route: 048
  2. LANSOPRAZOLE [Concomitant]
  3. AMLODIPINE [Concomitant]
  4. RAMIPRIL [Concomitant]
  5. SIMVASTATIN [Concomitant]

REACTIONS (1)
  - UPPER GASTROINTESTINAL HAEMORRHAGE [None]
